FAERS Safety Report 21871222 (Version 1)
Quarter: 2023Q1

REPORT INFORMATION
  Report Type: Spontaneous
  Country: US (occurrence: None)
  Receive Date: 20230113
  Receipt Date: 20230113
  Transmission Date: 20230417
  Serious: No
  Sender: FDA-Public Use
  Company Number: None

PATIENT
  Age: 78 Year
  Sex: Male

DRUGS (1)
  1. SUNITINIB [Suspect]
     Active Substance: SUNITINIB
     Indication: Gastrointestinal stromal tumour
     Dosage: OTHER FREQUENCY : UNKNOWN;?
     Route: 048
     Dates: start: 202211, end: 20230113

REACTIONS (1)
  - Disease progression [None]

NARRATIVE: CASE EVENT DATE: 20230113
